FAERS Safety Report 17889399 (Version 1)
Quarter: 2020Q2

REPORT INFORMATION
  Report Type: Spontaneous
  Country: US (occurrence: US)
  Receive Date: 20200612
  Receipt Date: 20200612
  Transmission Date: 20200714
  Serious: Yes (Disabling)
  Sender: FDA-Public Use
  Company Number: None

PATIENT
  Age: 69 Year
  Sex: Female
  Weight: 46.27 kg

DRUGS (24)
  1. ROSUVASTATIN CALCIUM 10MG [Suspect]
     Active Substance: ROSUVASTATIN CALCIUM
     Indication: BLOOD CHOLESTEROL
     Route: 048
     Dates: start: 20190421, end: 201906
  2. CGM [Concomitant]
  3. BIOTIN [Concomitant]
     Active Substance: BIOTIN
  4. OMEGA 3 [Concomitant]
     Active Substance: OMEGA-3 FATTY ACIDS
  5. VITAMIN B12 [Concomitant]
     Active Substance: CYANOCOBALAMIN
  6. DEXCOM G4 [Concomitant]
     Active Substance: DEVICE
  7. NOVOLOG [Concomitant]
     Active Substance: INSULIN ASPART
  8. ZETIA [Suspect]
     Active Substance: EZETIMIBE
  9. LIOTHYROXINE [Concomitant]
  10. LEVOTHYROXINE. [Concomitant]
     Active Substance: LEVOTHYROXINE
  11. MELATONIA [Concomitant]
  12. BABY ASPIRIN [Concomitant]
     Active Substance: ASPIRIN
  13. COENZYME Q10 [Concomitant]
     Active Substance: UBIDECARENONE
  14. CRANBERRY. [Concomitant]
     Active Substance: CRANBERRY
  15. VITAMIN D3 [Concomitant]
     Active Substance: CHOLECALCIFEROL
  16. LOSARTAN POTASSIUM. [Concomitant]
     Active Substance: LOSARTAN POTASSIUM
  17. TRESIBA [Concomitant]
     Active Substance: INSULIN DEGLUDEC
  18. VIT K7 [Concomitant]
  19. MAGNESIUM [Concomitant]
     Active Substance: MAGNESIUM
  20. AREDS 2 [Concomitant]
     Active Substance: MINERALS\VITAMINS
  21. NAHOKINASE PROBIOTIC [Concomitant]
  22. VITAMIN C [Concomitant]
     Active Substance: ASCORBIC ACID
  23. NYSTATIN. [Concomitant]
     Active Substance: NYSTATIN
  24. CARDITONE [Concomitant]

REACTIONS (1)
  - Neuropathy peripheral [None]
